FAERS Safety Report 7792242-2 (Version None)
Quarter: 2011Q4

REPORT INFORMATION
  Report Type: 
  Country: None (occurrence: None)
  Receive Date: 20111003
  Receipt Date: 20110927
  Transmission Date: 20120403
  Serious: Yes (Hospitalization, Other)
  Sender: FDA-Public Use
  Company Number: DE-SANOFI-AVENTIS-2011SA056592

PATIENT
  Age: 74 Year
  Sex: Male
  Weight: 79 kg

DRUGS (10)
  1. VITAMINE B12 [Concomitant]
     Indication: PROPHYLAXIS AGAINST ALCOHOLIC WITHDRAWAL SYNDROME
     Route: 065
  2. BISOPROLOL [Concomitant]
     Route: 048
     Dates: start: 20110826
  3. VERAPAMIL [Concomitant]
     Route: 048
     Dates: end: 20110101
  4. ST MARY'S THISTLE [Concomitant]
     Indication: PROPHYLAXIS AGAINST ALCOHOLIC WITHDRAWAL SYNDROME
     Route: 065
  5. MULTAQ [Suspect]
     Route: 048
     Dates: start: 20110826
  6. ALLOBETA [Concomitant]
     Route: 048
     Dates: end: 20110101
  7. PRAVASTATIN SODIUM [Concomitant]
     Route: 048
     Dates: end: 20110101
  8. RAMIPRIL [Concomitant]
     Route: 048
  9. TOLTERODINE TARTRATE [Concomitant]
     Route: 065
  10. SITAGLIPTIN PHOSPHATE [Concomitant]
     Route: 048

REACTIONS (13)
  - LIVER FUNCTION TEST ABNORMAL [None]
  - BLOOD BILIRUBIN INCREASED [None]
  - BRADYCARDIA [None]
  - HYPERHIDROSIS [None]
  - ANXIETY [None]
  - MALAISE [None]
  - ALANINE AMINOTRANSFERASE INCREASED [None]
  - BLOOD CHOLINESTERASE DECREASED [None]
  - BLOOD POTASSIUM INCREASED [None]
  - GLOMERULAR FILTRATION RATE DECREASED [None]
  - ASPARTATE AMINOTRANSFERASE INCREASED [None]
  - BLOOD CREATININE INCREASED [None]
  - GAMMA-GLUTAMYLTRANSFERASE INCREASED [None]
